FAERS Safety Report 5092447-8 (Version None)
Quarter: 2006Q3

REPORT INFORMATION
  Report Type: 
  Country: None (occurrence: None)
  Receive Date: 20060825
  Receipt Date: 20060815
  Transmission Date: 20061208
  Serious: Yes (Other)
  Sender: FDA-Public Use
  Company Number: 2006088147

PATIENT
  Age: 35 Year
  Sex: Female
  Weight: 83.9154 kg

DRUGS (6)
  1. DETROL LA [Suspect]
     Indication: MICTURITION URGENCY
     Dosage: 4 MG (4 MG, 1 IN 1 D), ORAL
     Route: 048
     Dates: start: 20060711, end: 20060714
  2. DETROL LA [Suspect]
     Indication: POLLAKIURIA
     Dosage: 4 MG (4 MG, 1 IN 1 D), ORAL
     Route: 048
     Dates: start: 20060711, end: 20060714
  3. ACCUTANE [Concomitant]
  4. WELLBUTRIN [Concomitant]
  5. CONCERTA [Concomitant]
  6. ALDACTONE [Concomitant]

REACTIONS (3)
  - EYE DISORDER [None]
  - FEELING ABNORMAL [None]
  - VISUAL DISTURBANCE [None]
